FAERS Safety Report 5108031-3 (Version None)
Quarter: 2006Q3

REPORT INFORMATION
  Report Type: 
  Country: None (occurrence: None)
  Receive Date: 20060914
  Receipt Date: 20060901
  Transmission Date: 20061208
  Serious: Yes (Other)
  Sender: FDA-Public Use
  Company Number: 2006109453

PATIENT
  Age: 61 Year
  Sex: Female
  Weight: 44 kg

DRUGS (3)
  1. IRINOTECAN HCL [Suspect]
     Indication: GASTRIC CANCER
     Dosage: 66.7 MG/M2, INTRAVENOUS
     Route: 042
     Dates: start: 20050430, end: 20050617
  2. CISPLATIN [Suspect]
     Indication: GASTRIC CANCER
     Dosage: 79.3 MG/M2, INTRAVENOUS; SEE IMAGE
     Route: 042
     Dates: start: 20050430, end: 20050430
  3. CISPLATIN [Suspect]
     Indication: GASTRIC CANCER
     Dosage: 79.3 MG/M2, INTRAVENOUS; SEE IMAGE
     Route: 042
     Dates: start: 20050603, end: 20050603

REACTIONS (6)
  - HYPERKALAEMIA [None]
  - ILL-DEFINED DISORDER [None]
  - LEUKOPENIA [None]
  - MALIGNANT NEOPLASM PROGRESSION [None]
  - METASTASES TO PERITONEUM [None]
  - NEUTROPENIA [None]
